FAERS Safety Report 25527839 (Version 1)
Quarter: 2025Q3

REPORT INFORMATION
  Report Type: Spontaneous
  Country: CN (occurrence: CN)
  Receive Date: 20250708
  Receipt Date: 20250708
  Transmission Date: 20251020
  Serious: Yes (Other)
  Sender: ALCON
  Company Number: CN-ALCON LABORATORIES-ALC2025CN003358

PATIENT
  Age: 7 Year
  Sex: Female

DRUGS (1)
  1. PROPARACAINE HYDROCHLORIDE [Suspect]
     Active Substance: PROPARACAINE HYDROCHLORIDE
     Indication: Local anaesthesia
     Dates: start: 20250612, end: 20250612

REACTIONS (1)
  - Syncope [Recovering/Resolving]

NARRATIVE: CASE EVENT DATE: 20250612
